FAERS Safety Report 16054756 (Version 1)
Quarter: 2019Q1

REPORT INFORMATION
  Report Type: Spontaneous
  Country: US (occurrence: US)
  Receive Date: 20190309
  Receipt Date: 20190309
  Transmission Date: 20190418
  Serious: Yes (Hospitalization, Other)
  Sender: FDA-Public Use
  Company Number: PHEH2019US009359

PATIENT
  Sex: Female

DRUGS (1)
  1. TASIGNA [Suspect]
     Active Substance: NILOTINIB
     Indication: CHRONIC MYELOID LEUKAEMIA
     Dosage: 2 DF, BID
     Route: 048
     Dates: start: 20131218

REACTIONS (14)
  - Hypogammaglobulinaemia [Unknown]
  - Constipation [Unknown]
  - Muscle spasms [Unknown]
  - Cholecystitis chronic [Unknown]
  - Pericardial effusion [Unknown]
  - Hypophosphataemia [Unknown]
  - Abdominal pain [Unknown]
  - Coronary artery disease [Unknown]
  - Mitral valve stenosis [Unknown]
  - Pancreatitis [Unknown]
  - Palpitations [Unknown]
  - Sinusitis [Unknown]
  - Chest pain [Unknown]
  - Arteriosclerosis [Unknown]
